FAERS Safety Report 8410593-5 (Version None)
Quarter: 2012Q2

REPORT INFORMATION
  Report Type: 
  Country: None (occurrence: None)
  Receive Date: 20120605
  Receipt Date: 20120522
  Transmission Date: 20120825
  Serious: Yes (Other)
  Sender: FDA-Public Use
  Company Number: US-SANOFI-AVENTIS-2012SA039182

PATIENT
  Sex: Female

DRUGS (3)
  1. METFORMIN HCL [Suspect]
     Dates: start: 19970101
  2. GLIPIZIDE [Suspect]
  3. GLYBURIDE [Suspect]

REACTIONS (2)
  - VASCULAR OCCLUSION [None]
  - STENT PLACEMENT [None]
